FAERS Safety Report 6458253-4 (Version None)
Quarter: 2009Q4

REPORT INFORMATION
  Report Type: 
  Country: None (occurrence: None)
  Receive Date: 20091125
  Receipt Date: 20091118
  Transmission Date: 20100525
  Serious: Yes (Other)
  Sender: FDA-Public Use
  Company Number: FR-AMGEN-US375997

PATIENT
  Sex: Female

DRUGS (1)
  1. ENBREL [Suspect]
     Indication: RHEUMATOID ARTHRITIS
     Route: 058
     Dates: start: 20091015

REACTIONS (5)
  - DIABETIC FOOT [None]
  - INJECTION SITE MASS [None]
  - INJECTION SITE PAIN [None]
  - ULCER HAEMORRHAGE [None]
  - ULCERATIVE KERATITIS [None]
